FAERS Safety Report 4401460-2 (Version None)
Quarter: 2004Q3

REPORT INFORMATION
  Report Type: 
  Country: None (occurrence: None)
  Receive Date: 20040907
  Receipt Date: 20040512
  Transmission Date: 20050211
  Serious: No
  Sender: FDA-Public Use
  Company Number: US-BRISTOL-MYERS SQUIBB COMPANY-12585998

PATIENT
  Age: 77 Year
  Sex: Female
  Weight: 56 kg

DRUGS (11)
  1. COUMADIN [Suspect]
     Indication: CARDIAC OPERATION
     Dosage: DOSE VAL: 2.5 MG MON,WED,FRI, ALTERNATING WITH 5 MG SUN,TUES,THURS,SAT. DURATION: 4 TO 5 YR.
     Route: 048
  2. COUMADIN [Suspect]
     Indication: ARRHYTHMIA
     Dosage: DOSE VAL: 2.5 MG MON,WED,FRI, ALTERNATING WITH 5 MG SUN,TUES,THURS,SAT. DURATION: 4 TO 5 YR.
     Route: 048
  3. LEXAPRO [Concomitant]
  4. LASIX [Concomitant]
  5. KLOR-CON [Concomitant]
  6. TOPROL-XL [Concomitant]
  7. FOSAMAX [Concomitant]
  8. AMBIEN [Concomitant]
  9. OS-CAL [Concomitant]
  10. MULTI-VITAMINS [Concomitant]
  11. CHONDROITIN + GLUCOSAMINE [Concomitant]

REACTIONS (1)
  - ALOPECIA [None]
